FAERS Safety Report 5148062-0 (Version None)
Quarter: 2006Q4

REPORT INFORMATION
  Report Type: 
  Country: None (occurrence: None)
  Receive Date: 20060918
  Receipt Date: 20060214
  Transmission Date: 20070319
  Serious: Yes (Other)
  Sender: FDA-Public Use
  Company Number: US-JNJFOC-20050802051

PATIENT
  Age: 36 Year
  Sex: Female

DRUGS (10)
  1. TOPAMAX [Suspect]
     Indication: MIGRAINE
     Dosage: 50 MG, 2 IN 1 DAY
     Dates: start: 20050624, end: 20050705
  2. FOSOMAX (ALENDRONATE SODIUM) [Concomitant]
  3. AMBIEN [Concomitant]
  4. DETROL LA [Concomitant]
  5. CARDURA [Concomitant]
  6. BACLOFEN [Concomitant]
  7. IMITREX [Concomitant]
  8. SOLU-MEDROL [Concomitant]
  9. CALCIUM (CALCIUM) [Concomitant]
  10. AVONEX [Concomitant]

REACTIONS (3)
  - MYOPIA [None]
  - VISION BLURRED [None]
  - VISUAL ACUITY REDUCED [None]
